FAERS Safety Report 19319719 (Version 1)
Quarter: 2021Q2

REPORT INFORMATION
  Report Type: Spontaneous
  Country: US (occurrence: US)
  Receive Date: 20210527
  Receipt Date: 20210527
  Transmission Date: 20210717
  Serious: Yes (Hospitalization)
  Sender: FDA-Public Use
  Company Number: None

PATIENT
  Age: 72 Year
  Sex: Male

DRUGS (7)
  1. AMBIEN [Suspect]
     Active Substance: ZOLPIDEM TARTRATE
  2. ZELBORAF [Suspect]
     Active Substance: VEMURAFENIB
     Indication: MALIGNANT MELANOMA
     Dosage: ?          OTHER DOSE:1 TAB;?
     Route: 048
     Dates: start: 20210305
  3. PRILOSEC OTC [Concomitant]
     Active Substance: OMEPRAZOLE MAGNESIUM
  4. PANTOPRAZOLE [Concomitant]
     Active Substance: PANTOPRAZOLE
  5. ONDANSETRON [Concomitant]
     Active Substance: ONDANSETRON
  6. FIBER COMPLETE [Concomitant]
  7. METOPROL TAR [Concomitant]

REACTIONS (2)
  - Therapy interrupted [None]
  - Gastric infection [None]

NARRATIVE: CASE EVENT DATE: 20210516
